FAERS Safety Report 6592840-8 (Version None)
Quarter: 2010Q1

REPORT INFORMATION
  Report Type: 
  Country: None (occurrence: None)
  Receive Date: 20100212
  Receipt Date: 20100129
  Transmission Date: 20100710
  Serious: Yes (Hospitalization)
  Sender: FDA-Public Use
  Company Number: 006114

PATIENT
  Age: 77 Year
  Sex: Male
  Weight: 82 kg

DRUGS (7)
  1. KEPPRA [Suspect]
     Indication: CONVULSION
     Dosage: 500 MG, BID, ORAL
     Route: 048
     Dates: start: 20090623, end: 20090715
  2. DEXAMETHASONE [Concomitant]
  3. FINASTERIDE [Concomitant]
  4. FUROSEMIDE [Concomitant]
  5. PANTOPRAZOLE [Concomitant]
  6. BIPRETERAX [Concomitant]
  7. NOVOTHYRAL [Concomitant]

REACTIONS (5)
  - COAGULOPATHY [None]
  - DRUG TOXICITY [None]
  - HEPATIC STEATOSIS [None]
  - HEPATOMEGALY [None]
  - RENAL DISORDER [None]
